FAERS Safety Report 20462781 (Version 1)
Quarter: 2022Q1

REPORT INFORMATION
  Report Type: Spontaneous
  Country: US (occurrence: None)
  Receive Date: 20220211
  Receipt Date: 20220211
  Transmission Date: 20220423
  Serious: Yes (Life-Threatening, Hospitalization, Disabling)
  Sender: FDA-Public Use
  Company Number: None

PATIENT
  Age: 64 Year
  Sex: Female
  Weight: 69.75 kg

DRUGS (6)
  1. RITUXAN [Suspect]
     Active Substance: RITUXIMAB
     Indication: Ocular pemphigoid
     Dosage: OTHER QUANTITY : 1 INFUSE 700 MG 1/WK;?OTHER FREQUENCY : 1 WK THEN MONTHLY;?
     Route: 042
     Dates: start: 20150813, end: 20200103
  2. RITUXAN [Suspect]
     Active Substance: RITUXIMAB
     Indication: Pemphigoid
  3. BIOTIN [Concomitant]
     Active Substance: BIOTIN
  4. CHOLECALCIFEROL VITAMIN D-3 [Concomitant]
  5. VITAMIN C [Concomitant]
     Active Substance: ASCORBIC ACID
  6. SYSTANE (HYPROMELLOSE 2910 (4000 MPA.S)) [Concomitant]
     Active Substance: HYPROMELLOSE 2910 (4000 MPA.S)

REACTIONS (10)
  - Progressive multifocal leukoencephalopathy [None]
  - Hypoaesthesia [None]
  - Dysarthria [None]
  - Dysmetria [None]
  - Ataxia [None]
  - Balance disorder [None]
  - Nystagmus [None]
  - Affect lability [None]
  - Executive dysfunction [None]
  - JC virus infection [None]

NARRATIVE: CASE EVENT DATE: 20170801
